FAERS Safety Report 13163759 (Version 1)
Quarter: 2017Q1

REPORT INFORMATION
  Report Type: Spontaneous
  Country: US (occurrence: US)
  Receive Date: 20170130
  Receipt Date: 20170130
  Transmission Date: 20170428
  Serious: No
  Sender: FDA-Public Use
  Company Number: US-TEVA-727769ACC

PATIENT
  Sex: Male

DRUGS (8)
  1. ASPIRIN CHW 81MG [Concomitant]
  2. VITAMIN D CAP 2000UNIT [Concomitant]
  3. CENTRUM TAB SILVER [Concomitant]
  4. METHOTREXATE TAB 2.5MG [Concomitant]
     Active Substance: METHOTREXATE
  5. LIPITOR TAB 80MG [Concomitant]
  6. COPAXONE [Suspect]
     Active Substance: GLATIRAMER ACETATE
     Indication: MULTIPLE SCLEROSIS
     Route: 058
     Dates: start: 20140915
  7. FOLIC ACID TAB 10MG [Concomitant]
  8. OYS SHELL CA TAB/ VIT D [Concomitant]

REACTIONS (1)
  - Injection site erythema [Not Recovered/Not Resolved]

NARRATIVE: CASE EVENT DATE: 2016
